FAERS Safety Report 9005306 (Version 2)
Quarter: 2013Q1

REPORT INFORMATION
  Report Type: Spontaneous
  Country: US (occurrence: US)
  Receive Date: 20130108
  Receipt Date: 20130215
  Transmission Date: 20140127
  Serious: Yes (Death)
  Sender: FDA-Public Use
  Company Number: US-ELI_LILLY_AND_COMPANY-US201301001894

PATIENT
  Age: 84 Year
  Sex: Male
  Weight: 78.91 kg

DRUGS (5)
  1. ADCIRCA [Suspect]
     Indication: PULMONARY ARTERIAL HYPERTENSION
     Dosage: 20 MG, BID
     Route: 048
     Dates: start: 20121114
  2. CELEBREX [Concomitant]
     Dosage: 200 MG, QD
     Route: 048
  3. LIPITOR [Concomitant]
     Dosage: 80 MG, QD
     Route: 048
  4. PLAVIX [Concomitant]
     Dosage: 75 MG, UNKNOWN
  5. FLUDROCORTISONE ACETATE [Concomitant]
     Dosage: 0.1 MG, OTHER
     Route: 048

REACTIONS (1)
  - Cerebrovascular accident [Fatal]
